FAERS Safety Report 4336806-7 (Version None)
Quarter: 2004Q2

REPORT INFORMATION
  Report Type: 
  Country: None (occurrence: None)
  Receive Date: 20040407
  Receipt Date: 20040330
  Transmission Date: 20050107
  Serious: Yes (Death)
  Sender: FDA-Public Use
  Company Number: US-JNJFOC-20040200315

PATIENT
  Age: 52 Year
  Sex: Male
  Weight: 111.1313 kg

DRUGS (5)
  1. RISPERDAL CONSTA [Suspect]
     Indication: PSYCHOTIC DISORDER
     Dosage: 25 MG, INTRAMUSCULAR
     Route: 030
     Dates: start: 20040114
  2. RISPERDAL CONSTA [Suspect]
     Indication: SCHIZOPHRENIA
     Dosage: 25 MG, INTRAMUSCULAR
     Route: 030
     Dates: start: 20040114
  3. RISPERDAL [Suspect]
     Indication: SCHIZOPHRENIA
     Route: 030
  4. OMEPRAZOLE [Concomitant]
  5. BIO-SELENIUM + ZINC (SELENIUM SULFIDE) [Concomitant]

REACTIONS (1)
  - DEATH [None]
